FAERS Safety Report 6531216-6 (Version None)
Quarter: 2010Q1

REPORT INFORMATION
  Report Type: 
  Country: None (occurrence: None)
  Receive Date: 20100108
  Receipt Date: 20091230
  Transmission Date: 20100710
  Serious: Yes (Hospitalization, Other)
  Sender: FDA-Public Use
  Company Number: PHHY2009AU59313

PATIENT
  Sex: Male

DRUGS (3)
  1. CLOZARIL [Suspect]
     Dosage: 350 MG DAILY
  2. CLOZARIL [Suspect]
     Dosage: 100 MG
     Dates: start: 20090403
  3. CLOZARIL [Suspect]
     Dosage: 150 MG

REACTIONS (6)
  - BUNDLE BRANCH BLOCK RIGHT [None]
  - DRUG ABUSE [None]
  - PSYCHOTIC DISORDER [None]
  - TREATMENT NONCOMPLIANCE [None]
  - URINARY TRACT INFECTION [None]
  - VOMITING [None]
